FAERS Safety Report 18570348 (Version 1)
Quarter: 2020Q4

REPORT INFORMATION
  Report Type: Spontaneous
  Country: US (occurrence: US)
  Receive Date: 20201202
  Receipt Date: 20201202
  Transmission Date: 20210114
  Serious: Yes (Hospitalization, Other)
  Sender: FDA-Public Use
  Company Number: US-SLATE RUN PHARMACEUTICALS-20US000335

PATIENT

DRUGS (4)
  1. VANCOMYCIN HYDROCHLORIDE USP [Suspect]
     Active Substance: VANCOMYCIN HYDROCHLORIDE
     Indication: MATERNAL EXPOSURE TIMING UNSPECIFIED
     Dosage: 1000 MILLIGRAM, Q 12 HR
     Route: 064
  2. CEFEPIME [Concomitant]
     Active Substance: CEFEPIME HYDROCHLORIDE
     Indication: MATERNAL EXPOSURE TIMING UNSPECIFIED
     Dosage: 2 GRAM, Q 8 HR
     Route: 064
  3. BUPRENORPHINE. [Concomitant]
     Active Substance: BUPRENORPHINE
     Indication: MATERNAL EXPOSURE TIMING UNSPECIFIED
     Route: 064
  4. CEFAZOLIN [Concomitant]
     Active Substance: CEFAZOLIN
     Indication: MATERNAL EXPOSURE TIMING UNSPECIFIED
     Dosage: 2 GRAM, Q 8 HR
     Route: 064

REACTIONS (4)
  - Neonatal respiratory distress syndrome [Recovered/Resolved]
  - Foetal exposure during pregnancy [Unknown]
  - Meconium stain [Recovered/Resolved]
  - Drug withdrawal syndrome neonatal [Recovered/Resolved]
